FAERS Safety Report 4452815-1 (Version None)
Quarter: 2004Q3

REPORT INFORMATION
  Report Type: 
  Country: None (occurrence: None)
  Receive Date: 20040916
  Receipt Date: 20040914
  Transmission Date: 20050211
  Serious: Yes (Life-Threatening)
  Sender: FDA-Public Use
  Company Number: TCI2004A03411

PATIENT
  Age: 89 Year
  Sex: Female

DRUGS (1)
  1. TAKEPRON OD TABLETS 30 (LANSOPRAZOLE) (TABLETS) [Suspect]
     Indication: GASTRIC ULCER
     Dosage: 30 MG (30 MG, 1 IN 1 D) PER ORAL
     Route: 048
     Dates: start: 20040810, end: 20040830

REACTIONS (1)
  - OBSTRUCTIVE AIRWAYS DISORDER [None]
